FAERS Safety Report 25473298 (Version 1)
Quarter: 2025Q2

REPORT INFORMATION
  Report Type: Spontaneous
  Country: AU (occurrence: AU)
  Receive Date: 20250624
  Receipt Date: 20250624
  Transmission Date: 20250716
  Serious: Yes (Other)
  Sender: GILEAD
  Company Number: AU-GILEAD-2025-0717655

PATIENT
  Sex: Male

DRUGS (2)
  1. BIKTARVY [Suspect]
     Active Substance: BICTEGRAVIR SODIUM\EMTRICITABINE\TENOFOVIR ALAFENAMIDE FUMARATE
     Indication: HIV infection
     Route: 065
  2. RILPIVIRINE [Concomitant]
     Active Substance: RILPIVIRINE

REACTIONS (4)
  - Psychotic disorder [Unknown]
  - Genotype drug resistance test positive [Unknown]
  - Blood HIV RNA decreased [Recovered/Resolved]
  - Disease risk factor [Unknown]
